FAERS Safety Report 6665887-0 (Version None)
Quarter: 2010Q2

REPORT INFORMATION
  Report Type: 
  Country: None (occurrence: None)
  Receive Date: 20100402
  Receipt Date: 20100325
  Transmission Date: 20101027
  Serious: Yes (Hospitalization, Other)
  Sender: FDA-Public Use
  Company Number: BE-ROCHE-693569

PATIENT
  Age: 75 Year
  Sex: Female
  Weight: 74 kg

DRUGS (3)
  1. AVASTIN [Suspect]
     Indication: COLON CANCER
     Route: 042
     Dates: start: 20100310, end: 20100310
  2. IRINOTECAN HCL [Suspect]
     Indication: COLON CANCER
     Route: 042
     Dates: start: 20100310, end: 20100310
  3. FLUOROURACIL [Suspect]
     Indication: COLON CANCER
     Dosage: DOSE: 700MG/4200MG, ROUTE: IVD/IVC 48 HOURS
     Route: 042
     Dates: start: 20100310, end: 20100310

REACTIONS (4)
  - DIARRHOEA [None]
  - LARGE INTESTINE PERFORATION [None]
  - RENAL FAILURE [None]
  - URINARY TRACT INFECTION [None]
